FAERS Safety Report 21364724 (Version 2)
Quarter: 2022Q4

REPORT INFORMATION
  Report Type: Report from Study
  Country: CO (occurrence: CO)
  Receive Date: 20220922
  Receipt Date: 20221228
  Transmission Date: 20230112
  Serious: Yes (Hospitalization, Other)
  Sender: FDA-Public Use
  Company Number: CO-TAKEDA-2021TUS059448

PATIENT
  Age: 28 Year
  Sex: Female
  Weight: 60 kg

DRUGS (2)
  1. PONATINIB [Suspect]
     Active Substance: PONATINIB
     Indication: Acute lymphocytic leukaemia
     Dosage: 45 MILLIGRAM, QD
     Route: 048
     Dates: start: 20210129, end: 20210920
  2. PONATINIB [Suspect]
     Active Substance: PONATINIB
     Dosage: 30 MILLIGRAM, QD
     Route: 048
     Dates: end: 20221209

REACTIONS (11)
  - Discouragement [Recovering/Resolving]
  - Pallor [Recovering/Resolving]
  - Nasal congestion [Unknown]
  - Rhinorrhoea [Unknown]
  - Tachypnoea [Recovering/Resolving]
  - Hepatotoxicity [Unknown]
  - Decreased appetite [Recovering/Resolving]
  - Cough [Unknown]
  - Malaise [Unknown]
  - Neutropenia [Unknown]
  - Pyrexia [Recovering/Resolving]

NARRATIVE: CASE EVENT DATE: 20210920
